FAERS Safety Report 4662447-8 (Version None)
Quarter: 2005Q2

REPORT INFORMATION
  Report Type: 
  Country: None (occurrence: None)
  Receive Date: 20050512
  Receipt Date: 20050504
  Transmission Date: 20051028
  Serious: Yes (Life-Threatening, Hospitalization, Other)
  Sender: FDA-Public Use
  Company Number: GBWYE229524NOV04

PATIENT
  Age: 49 Year
  Sex: Male

DRUGS (3)
  1. TAZOCIN (PIPERACILLIN/TAZOBACTAM, INJECTION) [Suspect]
     Indication: PANCREATITIS ACUTE
     Dosage: 4.5 G SINGLE DOSE
     Route: 042
     Dates: start: 20041022, end: 20041022
  2. ZINACEF [Concomitant]
  3. FLAGYL [Concomitant]

REACTIONS (6)
  - FEELING HOT [None]
  - HYPERSENSITIVITY [None]
  - HYPERTENSION [None]
  - RASH ERYTHEMATOUS [None]
  - RASH MACULO-PAPULAR [None]
  - TACHYCARDIA [None]
